FAERS Safety Report 18283565 (Version 1)
Quarter: 2020Q3

REPORT INFORMATION
  Report Type: Spontaneous
  Country: DE (occurrence: DE)
  Receive Date: 20200918
  Receipt Date: 20200918
  Transmission Date: 20201103
  Serious: Yes (Other)
  Sender: FDA-Public Use
  Company Number: DE-TEVA-2020-DE-1824832

PATIENT
  Age: 28 Year
  Sex: Male

DRUGS (2)
  1. MIRTAZAPIN?RATIOPHARM 30 MG FILMTABLETTEN [Suspect]
     Active Substance: MIRTAZAPINE
     Dosage: 30 MILLIGRAM DAILY; FOR APPROX. 4 YEARS
     Route: 048
     Dates: start: 2016
  2. AMISULPRID [Suspect]
     Active Substance: AMISULPRIDE
     Route: 065

REACTIONS (10)
  - Small fibre neuropathy [Not Recovered/Not Resolved]
  - Pruritus [Not Recovered/Not Resolved]
  - Sleep disorder [Unknown]
  - Withdrawal syndrome [Unknown]
  - Paraesthesia [Not Recovered/Not Resolved]
  - Dizziness [Unknown]
  - Disturbance in attention [Unknown]
  - Anxiety [Not Recovered/Not Resolved]
  - Insomnia [Recovered/Resolved]
  - Drug dependence [Not Recovered/Not Resolved]

NARRATIVE: CASE EVENT DATE: 2016
